FAERS Safety Report 22126040 (Version 1)
Quarter: 2023Q1

REPORT INFORMATION
  Report Type: Spontaneous
  Country: US (occurrence: US)
  Receive Date: 20230322
  Receipt Date: 20230322
  Transmission Date: 20230417
  Serious: No
  Sender: FDA-Public Use
  Company Number: US-ALLERGAN-2211576US

PATIENT
  Weight: 49.895 kg

DRUGS (1)
  1. LATISSE [Suspect]
     Active Substance: BIMATOPROST
     Indication: Glaucoma
     Dosage: UNK
     Route: 061
     Dates: start: 2019, end: 202106

REACTIONS (2)
  - Off label use [Unknown]
  - Iris hyperpigmentation [Recovered/Resolved]
